FAERS Safety Report 9685133 (Version 2)
Quarter: 2013Q4

REPORT INFORMATION
  Report Type: Spontaneous
  Country: US (occurrence: US)
  Receive Date: 20131113
  Receipt Date: 20131113
  Transmission Date: 20140711
  Serious: Yes (Other)
  Sender: FDA-Public Use
  Company Number: US-TEVA-437295USA

PATIENT
  Age: 81 Year
  Sex: Female

DRUGS (2)
  1. METFORMIN [Suspect]
  2. GLIPIZIDE [Suspect]

REACTIONS (3)
  - Arteriovenous malformation [Unknown]
  - Iron deficiency anaemia [Unknown]
  - Palpitations [Unknown]
